FAERS Safety Report 9286042 (Version 1)
Quarter: 2013Q2

REPORT INFORMATION
  Report Type: Spontaneous
  Country: CH (occurrence: CH)
  Receive Date: 20130513
  Receipt Date: 20130513
  Transmission Date: 20140414
  Serious: Yes (Other)
  Sender: FDA-Public Use
  Company Number: CH-BAYER-2013-056267

PATIENT
  Sex: 0

DRUGS (2)
  1. ASPIRIN CARDIO [Suspect]
     Dosage: 100 MG, UNK
  2. ADALAT CR [Suspect]

REACTIONS (2)
  - Drug eruption [None]
  - Rash vesicular [None]
